FAERS Safety Report 14398329 (Version 1)
Quarter: 2018Q1

REPORT INFORMATION
  Report Type: Spontaneous
  Country: US (occurrence: US)
  Receive Date: 20180116
  Receipt Date: 20180116
  Transmission Date: 20180509
  Serious: No
  Sender: FDA-Public Use
  Company Number: US-AMGEN-USASP2018005408

PATIENT
  Sex: Female

DRUGS (1)
  1. ENBREL [Suspect]
     Active Substance: ETANERCEPT
     Indication: LICHEN PLANUS
     Dosage: UNK UNK, 2 TIMES/WK
     Route: 065
     Dates: start: 201712

REACTIONS (2)
  - Wrong technique in product usage process [Unknown]
  - Off label use [Unknown]
